FAERS Safety Report 6602464-1 (Version None)
Quarter: 2010Q1

REPORT INFORMATION
  Report Type: 
  Country: None (occurrence: None)
  Receive Date: 20100225
  Receipt Date: 20100216
  Transmission Date: 20100710
  Serious: Yes (Other)
  Sender: FDA-Public Use
  Company Number: US-JNJFOC-20100207598

PATIENT
  Sex: Male

DRUGS (3)
  1. EXTRA STRENGTH TYLENOL [Suspect]
     Route: 048
  2. EXTRA STRENGTH TYLENOL [Suspect]
     Indication: PAIN
     Route: 048
  3. PEPTO-BISMOL [Suspect]
     Indication: ABDOMINAL PAIN UPPER
     Dosage: ^ALMOST A WHOLE BOTTLE^

REACTIONS (10)
  - ABDOMINAL PAIN [None]
  - AGGRESSION [None]
  - AMNESIA [None]
  - DIZZINESS [None]
  - FATIGUE [None]
  - FEELING DRUNK [None]
  - INCORRECT DOSE ADMINISTERED [None]
  - SELF INJURIOUS BEHAVIOUR [None]
  - SYNCOPE [None]
  - VOMITING [None]
